FAERS Safety Report 6588327-9 (Version None)
Quarter: 2010Q1

REPORT INFORMATION
  Report Type: 
  Country: None (occurrence: None)
  Receive Date: 20100218
  Receipt Date: 20100205
  Transmission Date: 20100710
  Serious: Yes (Other)
  Sender: FDA-Public Use
  Company Number: US-ROCHE-649302

PATIENT
  Sex: Female
  Weight: 77.1 kg

DRUGS (6)
  1. ACCUTANE [Suspect]
     Route: 048
     Dates: start: 20001129, end: 20010301
  2. PAXIL [Concomitant]
     Indication: OBSESSIVE-COMPULSIVE DISORDER
  3. PHENTERMINE [Concomitant]
     Indication: WEIGHT CONTROL
  4. AUGMENTIN [Concomitant]
     Indication: INFECTION
  5. CELEXA [Concomitant]
     Indication: DEPRESSION
  6. CELEXA [Concomitant]
     Dosage: DOSE DECREASED
     Dates: start: 20010201

REACTIONS (16)
  - ANXIETY [None]
  - ARTHRALGIA [None]
  - BLOOD CHOLESTEROL INCREASED [None]
  - CROHN'S DISEASE [None]
  - DEPRESSION [None]
  - ECZEMA [None]
  - EPISTAXIS [None]
  - GASTROOESOPHAGEAL REFLUX DISEASE [None]
  - HEADACHE [None]
  - INFLAMMATORY BOWEL DISEASE [None]
  - LETHARGY [None]
  - OBSESSIVE-COMPULSIVE DISORDER [None]
  - PAIN [None]
  - PHARYNGITIS [None]
  - PRURITUS [None]
  - XEROSIS [None]
